FAERS Safety Report 5278920-8 (Version None)
Quarter: 2007Q1

REPORT INFORMATION
  Report Type: 
  Country: None (occurrence: None)
  Receive Date: 20070327
  Receipt Date: 20070327
  Transmission Date: 20070707
  Serious: No
  Sender: FDA-Public Use
  Company Number: None

PATIENT

DRUGS (4)
  1. ZOLOFT [Suspect]
  2. CITALOPRAM [Suspect]
  3. PAROXETINE [Suspect]
  4. FLUOXETINE [Suspect]

REACTIONS (2)
  - DEVICE INEFFECTIVE [None]
  - INSOMNIA [None]
